FAERS Safety Report 10052304 (Version 1)
Quarter: 2014Q2

REPORT INFORMATION
  Report Type: Other
  Country: DE (occurrence: DE)
  Receive Date: 20140402
  Receipt Date: 20140402
  Transmission Date: 20141212
  Serious: Yes (Other)
  Sender: FDA-Public Use
  Company Number: DE-LUPIN PHARMACEUTICALS INC.-2014-00874

PATIENT
  Age: 29 Year
  Sex: Female
  Weight: 62 kg

DRUGS (5)
  1. SERTRALINE [Suspect]
     Indication: ANXIETY DISORDER
     Route: 048
  2. ZOPICLONE [Suspect]
     Indication: SLEEP DISORDER
     Route: 048
  3. OPIPRAMOL [Suspect]
     Indication: DEPRESSION
     Route: 048
  4. CENTRUM MATERNA [Concomitant]
     Indication: PROPHYLAXIS OF NEURAL TUBE DEFECT
     Route: 048
     Dates: start: 20120302
  5. NASENTROPFEN K [Concomitant]
     Indication: PRODUCT USED FOR UNKNOWN INDICATION
     Route: 045

REACTIONS (2)
  - Anogenital warts [Recovered/Resolved]
  - Exposure during pregnancy [Unknown]
